FAERS Safety Report 25902628 (Version 2)
Quarter: 2025Q4

REPORT INFORMATION
  Report Type: Spontaneous
  Country: US (occurrence: US)
  Receive Date: 20251009
  Receipt Date: 20251104
  Transmission Date: 20260117
  Serious: No
  Sender: CIPLA
  Company Number: US-CIPLA LTD.-2025US12257

PATIENT

DRUGS (1)
  1. ALBUTEROL [Suspect]
     Active Substance: ALBUTEROL
     Indication: Asthma
     Dosage: 180 MICROGRAM (2 PUFFS IN A DAY)
     Route: 048
     Dates: start: 202509

REACTIONS (2)
  - Recalled product administered [Unknown]
  - Headache [Unknown]

NARRATIVE: CASE EVENT DATE: 20250901
